FAERS Safety Report 6699099-1 (Version None)
Quarter: 2010Q2

REPORT INFORMATION
  Report Type: 
  Country: None (occurrence: None)
  Receive Date: 20100427
  Receipt Date: 20100420
  Transmission Date: 20101027
  Serious: Yes (Other)
  Sender: FDA-Public Use
  Company Number: DE-WYE-H14730510

PATIENT
  Age: 65 Year
  Sex: Female

DRUGS (1)
  1. PANTOZOL [Suspect]
     Indication: DYSPEPSIA
     Route: 048
     Dates: start: 20060101

REACTIONS (2)
  - HAEMATOLOGY TEST ABNORMAL [None]
  - PANCYTOPENIA [None]
